FAERS Safety Report 9078428 (Version 1)
Quarter: 2013Q1

REPORT INFORMATION
  Report Type: Spontaneous
  Country: BG (occurrence: BG)
  Receive Date: 20130215
  Receipt Date: 20130215
  Transmission Date: 20140127
  Serious: Yes (Death)
  Sender: FDA-Public Use
  Company Number: BG-UCBSA-078090

PATIENT
  Age: 35 Year
  Sex: Female

DRUGS (3)
  1. VIMPAT [Suspect]
     Indication: EPILEPSY
     Route: 048
     Dates: end: 201301
  2. LEVETIRACETAM [Concomitant]
     Indication: EPILEPSY
     Route: 048
     Dates: end: 201301
  3. SODIUM VALPROATE [Concomitant]
     Indication: EPILEPSY
     Route: 048
     Dates: end: 201301

REACTIONS (1)
  - Sudden death [Fatal]
